FAERS Safety Report 17907949 (Version 2)
Quarter: 2020Q3

REPORT INFORMATION
  Report Type: Spontaneous
  Country: GB (occurrence: GB)
  Receive Date: 20200617
  Receipt Date: 20200710
  Transmission Date: 20201103
  Serious: Yes (Other)
  Sender: FDA-Public Use
  Company Number: GB-MYLANLABS-2020M1056182

PATIENT
  Sex: Female

DRUGS (2)
  1. TAMOXIFEN [Suspect]
     Active Substance: TAMOXIFEN
     Indication: BREAST CANCER
     Dosage: 20 MILLIGRAM, QD, AT THE EVENING
  2. TAMOXIFEN [Suspect]
     Active Substance: TAMOXIFEN
     Indication: PROPHYLAXIS
     Dosage: UNK

REACTIONS (5)
  - Hallucination [Recovering/Resolving]
  - Weight increased [Not Recovered/Not Resolved]
  - Dry skin [Not Recovered/Not Resolved]
  - Pruritus [Not Recovered/Not Resolved]
  - Formication [Not Recovered/Not Resolved]

NARRATIVE: CASE EVENT DATE: 202005
